FAERS Safety Report 9924275 (Version 1)
Quarter: 2014Q1

REPORT INFORMATION
  Report Type: Report from Study
  Country: US (occurrence: US)
  Receive Date: 20140226
  Receipt Date: 20140226
  Transmission Date: 20141002
  Serious: Yes (Hospitalization)
  Sender: FDA-Public Use
  Company Number: US-BRISTOL-MYERS SQUIBB COMPANY-20220463

PATIENT
  Age: 68 Year
  Sex: Female
  Weight: 58.5 kg

DRUGS (8)
  1. BELATACEPT [Suspect]
     Indication: RENAL TRANSPLANT
     Dosage: 637.5MG?LAST DOSE:07JAN2014,15JAN14,30JAN14
     Route: 042
     Dates: start: 20140102
  2. CELLCEPT [Concomitant]
     Route: 048
  3. LEVOFLOXACIN [Concomitant]
     Route: 048
  4. FOLVITE [Concomitant]
     Route: 048
  5. NYSTATIN [Concomitant]
     Route: 048
  6. PEPCID [Concomitant]
     Route: 048
  7. VALCYTE [Concomitant]
     Route: 048
  8. BACTRIM [Concomitant]
     Dosage: 1DF = 400-80MG QMWF
     Route: 048

REACTIONS (2)
  - Urine output decreased [Unknown]
  - Constipation [Unknown]
